FAERS Safety Report 7879134-5 (Version None)
Quarter: 2011Q4

REPORT INFORMATION
  Report Type: 
  Country: None (occurrence: None)
  Receive Date: 20111101
  Receipt Date: 20111020
  Transmission Date: 20120403
  Serious: Yes (Other)
  Sender: FDA-Public Use
  Company Number: US-BAYER-2010-004389

PATIENT
  Age: 32 Year
  Sex: Female
  Weight: 86.168 kg

DRUGS (7)
  1. YASMIN [Suspect]
     Indication: ACNE
     Dosage: UNK
     Route: 048
     Dates: start: 20011117, end: 20031216
  2. CLARINEX [Concomitant]
     Dosage: 5 MG, UNK
     Dates: start: 20030101
  3. ZANTAC [Concomitant]
     Dosage: 150 MG, UNK
  4. PREVACID [Concomitant]
     Dosage: 30 MG, UNK
     Dates: start: 20030101
  5. HYDROXYZINE [Concomitant]
     Dosage: 25 MG, UNK
     Dates: start: 20030101
  6. ZOLOFT [Concomitant]
     Dosage: 50 MG, UNK
  7. NASONEX [Concomitant]
     Dosage: UNK
     Dates: start: 20030101

REACTIONS (11)
  - GASTROOESOPHAGEAL REFLUX DISEASE [None]
  - GALLBLADDER DISORDER [None]
  - PAIN [None]
  - ALOPECIA [None]
  - WEIGHT INCREASED [None]
  - HIATUS HERNIA [None]
  - BLOOD CHOLESTEROL INCREASED [None]
  - NERVOUSNESS [None]
  - CHOLECYSTITIS CHRONIC [None]
  - GASTROINTESTINAL DISORDER [None]
  - HYPERTENSION [None]
